FAERS Safety Report 22317523 (Version 1)
Quarter: 2023Q2

REPORT INFORMATION
  Report Type: Spontaneous
  Country: US (occurrence: US)
  Receive Date: 20230515
  Receipt Date: 20230515
  Transmission Date: 20230722
  Serious: No
  Sender: FDA-Public Use
  Company Number: US-SA-SAC20230510000968

PATIENT
  Age: 50 Year
  Sex: Female
  Weight: 166.5 kg

DRUGS (19)
  1. DUPIXENT [Suspect]
     Active Substance: DUPILUMAB
     Indication: Asthma
     Dosage: 300MG EVERY 14 DAYS
     Route: 058
     Dates: start: 20220503
  2. LASIX [Concomitant]
     Active Substance: FUROSEMIDE
  3. METFORMIN HYDROCHLORIDE [Concomitant]
     Active Substance: METFORMIN HYDROCHLORIDE
  4. GABAPENTIN [Concomitant]
     Active Substance: GABAPENTIN
  5. DRISDOL [Concomitant]
     Active Substance: ERGOCALCIFEROL
  6. CELECOXIB [Concomitant]
     Active Substance: CELECOXIB
  7. XANAX [Concomitant]
     Active Substance: ALPRAZOLAM
  8. ACYCLOVIR [Concomitant]
     Active Substance: ACYCLOVIR
  9. METOPROLOL TARTRATE [Concomitant]
     Active Substance: METOPROLOL TARTRATE
  10. LOVASTATIN [Concomitant]
     Active Substance: LOVASTATIN
  11. TRELEGY ELLIPTA [Concomitant]
     Active Substance: FLUTICASONE FUROATE\UMECLIDINIUM BROMIDE\VILANTEROL TRIFENATATE
     Dosage: 100-62.5 BLST W/DEV
  12. COZAAR [Concomitant]
     Active Substance: LOSARTAN POTASSIUM
  13. JARDIANCE [Concomitant]
     Active Substance: EMPAGLIFLOZIN
  14. ALBUTEROL SULFATE [Concomitant]
     Active Substance: ALBUTEROL SULFATE
  15. CELEBREX [Concomitant]
     Active Substance: CELECOXIB
  16. SPIRONOLACTONE [Concomitant]
     Active Substance: SPIRONOLACTONE
  17. LEVOTHYROXINE [Concomitant]
     Active Substance: LEVOTHYROXINE
  18. VITAMINS [Concomitant]
     Active Substance: VITAMINS
  19. FLULAVAL QUADRIVALENT [Concomitant]
     Dosage: UNK
     Dates: start: 2021, end: 2022

REACTIONS (4)
  - Asthma [Recovering/Resolving]
  - Injection site mass [Not Recovered/Not Resolved]
  - Injection site warmth [Not Recovered/Not Resolved]
  - Injection site pruritus [Not Recovered/Not Resolved]

NARRATIVE: CASE EVENT DATE: 20220501
